FAERS Safety Report 21800781 (Version 1)
Quarter: 2022Q4

REPORT INFORMATION
  Report Type: Spontaneous
  Country: CA (occurrence: CA)
  Receive Date: 20221230
  Receipt Date: 20221230
  Transmission Date: 20230112
  Serious: Yes (Other)
  Sender: FDA-Public Use
  Company Number: CA-TEVA-2022-CA-2839741

PATIENT
  Age: 65 Year
  Sex: Male

DRUGS (19)
  1. CHLORPROMAZINE [Interacting]
     Active Substance: CHLORPROMAZINE
     Indication: Schizophrenia
     Route: 065
  2. CHLORPROMAZINE [Interacting]
     Active Substance: CHLORPROMAZINE
     Indication: Organic brain syndrome
     Route: 065
  3. CHLORPROMAZINE [Interacting]
     Active Substance: CHLORPROMAZINE
     Indication: Epilepsy
     Route: 065
  4. CIPROFLOXACIN HYDROCHLORIDE [Interacting]
     Active Substance: CIPROFLOXACIN HYDROCHLORIDE
     Indication: Pneumonia
     Dosage: 1000 MILLIGRAM DAILY;
     Route: 048
  5. PHENYTOIN SODIUM [Suspect]
     Active Substance: PHENYTOIN SODIUM
     Indication: Schizophrenia
     Route: 065
  6. PHENYTOIN SODIUM [Suspect]
     Active Substance: PHENYTOIN SODIUM
     Indication: Organic brain syndrome
     Route: 065
  7. PHENYTOIN SODIUM [Suspect]
     Active Substance: PHENYTOIN SODIUM
     Indication: Epilepsy
     Dosage: 300 MILLIGRAM DAILY;
     Route: 048
  8. THIORIDAZINE [Suspect]
     Active Substance: THIORIDAZINE
     Indication: Schizophrenia
     Route: 065
  9. THIORIDAZINE [Suspect]
     Active Substance: THIORIDAZINE
     Indication: Organic brain syndrome
     Route: 065
  10. THIORIDAZINE [Suspect]
     Active Substance: THIORIDAZINE
     Indication: Epilepsy
     Route: 065
  11. BENZTROPINE [Concomitant]
     Active Substance: BENZTROPINE
     Indication: Schizophrenia
  12. BENZTROPINE [Concomitant]
     Active Substance: BENZTROPINE
     Indication: Organic brain syndrome
  13. BENZTROPINE [Concomitant]
     Active Substance: BENZTROPINE
     Indication: Epilepsy
  14. CLONAZEPAM [Concomitant]
     Active Substance: CLONAZEPAM
     Indication: Schizophrenia
  15. CLONAZEPAM [Concomitant]
     Active Substance: CLONAZEPAM
     Indication: Organic brain syndrome
  16. CLONAZEPAM [Concomitant]
     Active Substance: CLONAZEPAM
     Indication: Epilepsy
  17. LORAZEPAM [Concomitant]
     Active Substance: LORAZEPAM
     Indication: Schizophrenia
  18. LORAZEPAM [Concomitant]
     Active Substance: LORAZEPAM
     Indication: Organic brain syndrome
  19. LORAZEPAM [Concomitant]
     Active Substance: LORAZEPAM
     Indication: Epilepsy

REACTIONS (2)
  - Seizure [Recovered/Resolved]
  - Drug interaction [Recovered/Resolved]
